FAERS Safety Report 12644816 (Version 3)
Quarter: 2017Q4

REPORT INFORMATION
  Report Type: Spontaneous
  Country: US (occurrence: US)
  Receive Date: 20160811
  Receipt Date: 20171002
  Transmission Date: 20180320
  Serious: Yes (Hospitalization, Other)
  Sender: FDA-Public Use
  Company Number: US-PFIZER INC-2016381731

PATIENT
  Age: 73 Year
  Sex: Female
  Weight: 97.7 kg

DRUGS (2)
  1. XELJANZ XR [Suspect]
     Active Substance: TOFACITINIB CITRATE
     Indication: RHEUMATOID ARTHRITIS
     Dosage: 11 MG, DAILY (QD)
     Dates: start: 201604
  2. XELJANZ XR [Suspect]
     Active Substance: TOFACITINIB CITRATE
     Dosage: 11 MG, 1X/DAY
     Route: 048
     Dates: end: 2017

REACTIONS (7)
  - Pain [Unknown]
  - Drug ineffective [Not Recovered/Not Resolved]
  - Cardiac failure congestive [Unknown]
  - Dysphonia [Recovered/Resolved]
  - Intestinal obstruction [Unknown]
  - Dyspnoea [Recovered/Resolved]
  - Hernia [Unknown]

NARRATIVE: CASE EVENT DATE: 2016
